FAERS Safety Report 17272158 (Version 1)
Quarter: 2020Q1

REPORT INFORMATION
  Report Type: Report from Study
  Country: US (occurrence: US)
  Receive Date: 20200115
  Receipt Date: 20200115
  Transmission Date: 20200409
  Serious: Yes (Hospitalization, Other)
  Sender: FDA-Public Use
  Company Number: US-GILEAD-2020-0446562

PATIENT
  Age: 56 Year
  Sex: Female

DRUGS (17)
  1. PENTOXIFYLLIN [Concomitant]
     Active Substance: PENTOXIFYLLINE
  2. POTASSIUM CHLORIDE. [Concomitant]
     Active Substance: POTASSIUM CHLORIDE
  3. CEFUROXIME. [Concomitant]
     Active Substance: CEFUROXIME
  4. PERCOCET [OXYCODONE HYDROCHLORIDE;OXYCODONE TEREPHTHALATE;PARACETAMOL] [Concomitant]
     Active Substance: ACETAMINOPHEN\OXYCODONE HYDROCHLORIDE\OXYCODONE TEREPHTHALATE
  5. AMBRISENTAN [Suspect]
     Active Substance: AMBRISENTAN
     Indication: PULMONARY ARTERIAL HYPERTENSION
     Dosage: 10 MG, QD
     Route: 065
     Dates: start: 20160311
  6. AMIODARONE [Concomitant]
     Active Substance: AMIODARONE
  7. METOPROLOL. [Concomitant]
     Active Substance: METOPROLOL
  8. BENZONATATE. [Concomitant]
     Active Substance: BENZONATATE
  9. ENTRESTO [Concomitant]
     Active Substance: SACUBITRIL\VALSARTAN
  10. LEVOFLOXACIN. [Concomitant]
     Active Substance: LEVOFLOXACIN
  11. PREDNISONE. [Concomitant]
     Active Substance: PREDNISONE
  12. SPIRONOLACTON [Concomitant]
     Active Substance: SPIRONOLACTONE
  13. ALBUTEROL HFA [Concomitant]
     Active Substance: ALBUTEROL SULFATE
  14. MAG OXIDE [Concomitant]
     Active Substance: MAGNESIUM OXIDE
  15. MYCOPHENOLATE [Concomitant]
     Active Substance: MYCOPHENOLIC ACID
  16. FUROSEMIDE. [Concomitant]
     Active Substance: FUROSEMIDE
  17. SILDENAFIL. [Concomitant]
     Active Substance: SILDENAFIL

REACTIONS (2)
  - Malaise [Not Recovered/Not Resolved]
  - Pulmonary arterial hypertension [Not Recovered/Not Resolved]

NARRATIVE: CASE EVENT DATE: 201912
